FAERS Safety Report 25645342 (Version 1)
Quarter: 2025Q3

REPORT INFORMATION
  Report Type: Spontaneous
  Country: US (occurrence: None)
  Receive Date: 20250804
  Receipt Date: 20250804
  Transmission Date: 20251020
  Serious: Yes (Life-Threatening, Hospitalization, Disabling)
  Sender: FDA-CTU
  Company Number: None

PATIENT
  Age: 70 Year
  Sex: Female
  Weight: 48.6 kg

DRUGS (9)
  1. VERZENIO [Suspect]
     Active Substance: ABEMACICLIB
     Indication: Breast cancer metastatic
     Dosage: 1 TABLET EVERY 12 HOURS ORAL
     Route: 048
     Dates: start: 20240404, end: 20250522
  2. Prednisone 4 mg daily [Concomitant]
  3. Prilosec 20 mg daily [Concomitant]
  4. Timolol 0.5% drops OU BID [Concomitant]
  5. Lotemax 0.5% HS OD [Concomitant]
  6. Fulvestrant 500 mg IM Q month [Concomitant]
  7. Zometa 3.5 mg MVI [Concomitant]
  8. Vit D 2000 Units [Concomitant]
  9. Biotin 1000mcg [Concomitant]

REACTIONS (2)
  - Diverticulum intestinal [None]
  - Enterocolitis [None]

NARRATIVE: CASE EVENT DATE: 20250523
